FAERS Safety Report 25476033 (Version 1)
Quarter: 2025Q2

REPORT INFORMATION
  Report Type: Spontaneous
  Country: FR (occurrence: FR)
  Receive Date: 20250625
  Receipt Date: 20250625
  Transmission Date: 20250716
  Serious: Yes (Hospitalization)
  Sender: CHEPLAPHARM
  Company Number: None

PATIENT
  Age: 58 Year
  Sex: Male
  Weight: 47.5 kg

DRUGS (7)
  1. CLONAZEPAM [Suspect]
     Active Substance: CLONAZEPAM
     Indication: Dyskinesia
     Dosage: 1-0-0?DAILY DOSE: 2 MILLIGRAM
     Route: 048
     Dates: end: 20250113
  2. CLONAZEPAM [Suspect]
     Active Substance: CLONAZEPAM
     Indication: Dyskinesia
     Route: 048
  3. AMISULPRIDE [Concomitant]
     Active Substance: AMISULPRIDE
     Dosage: 1-0-0?DAILY DOSE: 200 MILLIGRAM
     Route: 048
  4. PAROXETINE HYDROCHLORIDE [Concomitant]
     Active Substance: PAROXETINE HYDROCHLORIDE
     Dosage: 2-0-0?DAILY DOSE: 40 MILLIGRAM
     Route: 048
  5. BUSPIRONE HYDROCHLORIDE [Concomitant]
     Active Substance: BUSPIRONE HYDROCHLORIDE
     Dosage: 2-0-0?DAILY DOSE: 20 MILLIGRAM
     Route: 048
  6. CLOPIDOGREL [Concomitant]
     Active Substance: CLOPIDOGREL BISULFATE
     Dosage: 0-1-0?DAILY DOSE: 75 MILLIGRAM
     Route: 048
  7. ROSUVASTATIN [Concomitant]
     Active Substance: ROSUVASTATIN
     Dosage: 0-0-1?DAILY DOSE: 20 MILLIGRAM
     Route: 048

REACTIONS (5)
  - Status epilepticus [Recovered/Resolved]
  - Drug withdrawal syndrome [Recovered/Resolved]
  - Overdose [Unknown]
  - Product administration interrupted [Unknown]
  - Off label use [Unknown]

NARRATIVE: CASE EVENT DATE: 20250101
